FAERS Safety Report 11188130 (Version 1)
Quarter: 2015Q2

REPORT INFORMATION
  Report Type: Spontaneous
  Country: US (occurrence: US)
  Receive Date: 20150615
  Receipt Date: 20150615
  Transmission Date: 20150821
  Serious: No
  Sender: FDA-Public Use
  Company Number: US-JNJFOC-20150423064

PATIENT
  Age: 85 Year
  Sex: Male
  Weight: 76.2 kg

DRUGS (4)
  1. TRAVATAN Z [Concomitant]
     Active Substance: TRAVOPROST
     Indication: GLAUCOMA DRUG THERAPY
     Dosage: 1 DROP EACH EYE
     Route: 031
     Dates: start: 2014
  2. TAMSULOSIN [Concomitant]
     Active Substance: TAMSULOSIN
     Indication: PROSTATIC DISORDER
     Route: 048
  3. FENTANYL. [Suspect]
     Active Substance: FENTANYL
     Indication: EAR PAIN
     Dosage: NDC 0781-7240-55
     Route: 062
     Dates: start: 2015
  4. CARVEDILOL. [Concomitant]
     Active Substance: CARVEDILOL
     Indication: CARDIAC DISORDER
     Route: 048
     Dates: start: 2004

REACTIONS (2)
  - Eye pruritus [Not Recovered/Not Resolved]
  - Pruritus [Recovering/Resolving]

NARRATIVE: CASE EVENT DATE: 201504
